FAERS Safety Report 18648318 (Version 1)
Quarter: 2020Q4

REPORT INFORMATION
  Report Type: Spontaneous
  Country: US (occurrence: US)
  Receive Date: 20201221
  Receipt Date: 20201221
  Transmission Date: 20210114
  Serious: No
  Sender: FDA-Public Use
  Company Number: None

PATIENT
  Age: 56 Year
  Sex: Female

DRUGS (1)
  1. IMATINIB MES 400MG TAB [Suspect]
     Active Substance: IMATINIB MESYLATE
     Route: 048
     Dates: start: 202009

REACTIONS (7)
  - Pallor [None]
  - Skin discolouration [None]
  - Skin laxity [None]
  - Unresponsive to stimuli [None]
  - Pain [None]
  - Increased tendency to bruise [None]
  - Skin laceration [None]

NARRATIVE: CASE EVENT DATE: 20201221
